FAERS Safety Report 16742313 (Version 1)
Quarter: 2019Q3

REPORT INFORMATION
  Report Type: Spontaneous
  Country: US (occurrence: US)
  Receive Date: 20190826
  Receipt Date: 20190826
  Transmission Date: 20191005
  Serious: Yes (Other)
  Sender: FDA-Public Use
  Company Number: US-JNJFOC-20190823699

PATIENT
  Sex: Female
  Weight: 93.07 kg

DRUGS (1)
  1. MICRONOR [Suspect]
     Active Substance: NORETHINDRONE
     Indication: CONTRACEPTION
     Route: 048
     Dates: start: 2017, end: 2017

REACTIONS (1)
  - Vaginal haemorrhage [Recovered/Resolved]

NARRATIVE: CASE EVENT DATE: 2017
